FAERS Safety Report 25007606 (Version 1)
Quarter: 2025Q1

REPORT INFORMATION
  Report Type: Spontaneous
  Country: CN (occurrence: CN)
  Receive Date: 20250225
  Receipt Date: 20250225
  Transmission Date: 20250408
  Serious: Yes (Life-Threatening)
  Sender: BOEHRINGER INGELHEIM
  Company Number: CN-BoehringerIngelheim-2025-BI-010775

PATIENT
  Age: 87 Year
  Sex: Male
  Weight: 56.000 kg

DRUGS (2)
  1. ATROVENT [Suspect]
     Active Substance: IPRATROPIUM BROMIDE
     Indication: Drug therapy
     Dosage: 1 DOSAGE FORM
     Dates: start: 20230317, end: 20230317
  2. BUDESONIDE [Suspect]
     Active Substance: BUDESONIDE
     Indication: Drug therapy
     Dosage: 1 DOSAGE FORM?FORM OF ADMIN: SUSPENSION
     Dates: start: 20230317, end: 20230317

REACTIONS (2)
  - Palpitations [Recovered/Resolved]
  - Chest discomfort [Recovered/Resolved]

NARRATIVE: CASE EVENT DATE: 20230317
